FAERS Safety Report 17456341 (Version 1)
Quarter: 2020Q1

REPORT INFORMATION
  Report Type: Spontaneous
  Country: FR (occurrence: FR)
  Receive Date: 20200225
  Receipt Date: 20200225
  Transmission Date: 20200409
  Serious: Yes (Hospitalization)
  Sender: FDA-Public Use
  Company Number: FR-GLAXOSMITHKLINE-FR2020029782

PATIENT
  Age: 52 Year
  Sex: Female
  Weight: 87 kg

DRUGS (5)
  1. PACLITAXEL KABI [Suspect]
     Active Substance: PACLITAXEL
     Indication: BREAST CANCER
     Dosage: IN TOTAL
     Route: 041
     Dates: start: 20191126, end: 20191126
  2. PEMBROLIZUMAB (MK-3475) [Concomitant]
     Active Substance: PEMBROLIZUMAB
     Indication: BREAST CANCER
     Dosage: IN TOTAL
     Route: 041
     Dates: start: 20191126, end: 20191126
  3. ONDANSETRON ACCORD [Concomitant]
     Active Substance: ONDANSETRON
     Indication: PREMEDICATION
     Dosage: IN TOTAL
     Route: 042
     Dates: start: 20191126, end: 20191126
  4. POLARAMINE [Concomitant]
     Active Substance: DEXCHLORPHENIRAMINE MALEATE
     Indication: PREMEDICATION
     Dosage: IN TOTAL
     Route: 042
     Dates: start: 20191126, end: 20191126
  5. AZANTAC [Suspect]
     Active Substance: RANITIDINE HYDROCHLORIDE
     Indication: PREMEDICATION
     Dosage: IN TOTAL
     Route: 042
     Dates: start: 20191126, end: 20191126

REACTIONS (4)
  - Infusion related reaction [Recovered/Resolved]
  - Erythema [Recovered/Resolved]
  - Drug hypersensitivity [Recovered/Resolved]
  - Hot flush [Recovered/Resolved]

NARRATIVE: CASE EVENT DATE: 20191126
